FAERS Safety Report 9510705 (Version 1)
Quarter: 2013Q3

REPORT INFORMATION
  Report Type: Report from Study
  Country: US (occurrence: US)
  Receive Date: 20130909
  Receipt Date: 20130909
  Transmission Date: 20140515
  Serious: Yes (Hospitalization)
  Sender: FDA-Public Use
  Company Number: US-ABBOTT-13P-163-1141816-00

PATIENT
  Sex: Female

DRUGS (5)
  1. HUMIRA [Suspect]
     Indication: RHEUMATOID ARTHRITIS
     Dates: end: 2011
  2. HUMIRA [Suspect]
     Dates: start: 2011
  3. METHOTREXATE [Concomitant]
     Indication: PRODUCT USED FOR UNKNOWN INDICATION
  4. VERAPAMIL [Concomitant]
     Indication: CARDIAC DISORDER
  5. PLAQUENIL [Concomitant]
     Indication: PRODUCT USED FOR UNKNOWN INDICATION

REACTIONS (6)
  - Depression [Recovering/Resolving]
  - Local swelling [Recovering/Resolving]
  - Angina pectoris [Recovering/Resolving]
  - Diabetes mellitus [Recovering/Resolving]
  - Rash [Recovered/Resolved]
  - Rheumatoid arthritis [Recovered/Resolved]
